FAERS Safety Report 25075565 (Version 1)
Quarter: 2025Q1

REPORT INFORMATION
  Report Type: Spontaneous
  Country: AL (occurrence: AL)
  Receive Date: 20250313
  Receipt Date: 20250313
  Transmission Date: 20250408
  Serious: Yes (Hospitalization)
  Sender: BAYER HEALTHCARE PHARMACEUTICALS INC.
  Company Number: AL-BAYER-2025A034236

PATIENT
  Age: 73 Year
  Sex: Male

DRUGS (3)
  1. NUBEQA [Suspect]
     Active Substance: DAROLUTAMIDE
     Indication: Hormone-dependent prostate cancer
     Dates: start: 2024
  2. GOSERELIN [Suspect]
     Active Substance: GOSERELIN
     Dates: start: 2024
  3. DOCETAXEL [Suspect]
     Active Substance: DOCETAXEL
     Dates: start: 2024

REACTIONS (3)
  - Neutropenia [None]
  - Lung disorder [None]
  - Drug intolerance [None]
